FAERS Safety Report 7826052-4 (Version None)
Quarter: 2011Q4

REPORT INFORMATION
  Report Type: 
  Country: None (occurrence: None)
  Receive Date: 20111019
  Receipt Date: 20111010
  Transmission Date: 20120403
  Serious: Yes (Hospitalization)
  Sender: FDA-Public Use
  Company Number: DE-ASTRAZENECA-2011SE62213

PATIENT
  Age: 23 Year
  Sex: Female
  Weight: 68 kg

DRUGS (6)
  1. TORSEMIDE [Suspect]
     Indication: GLOMERULONEPHRITIS MEMBRANOUS
     Route: 048
     Dates: start: 20101031, end: 20110126
  2. RAMIPRIL [Suspect]
     Indication: GLOMERULONEPHRITIS MEMBRANOUS
     Route: 048
     Dates: start: 20101031, end: 20110126
  3. PREDNISOLONE [Concomitant]
     Indication: SYSTEMIC LUPUS ERYTHEMATOSUS
     Route: 048
     Dates: start: 20091031, end: 20110131
  4. CYCLOSPORINE [Suspect]
     Indication: GLOMERULONEPHRITIS MEMBRANOUS
     Dosage: 300 MG/D (2X150)
     Route: 048
     Dates: start: 20091031, end: 20110131
  5. ENOXAPARIN SODIUM [Concomitant]
     Indication: DEEP VEIN THROMBOSIS
     Dosage: 140 MG/D (60+80)
     Route: 058
     Dates: start: 20110114, end: 20110131
  6. FALITHROM [Suspect]
     Indication: PULMONARY EMBOLISM
     Dosage: 6 MG/D (2X3)
     Route: 048
     Dates: start: 20091031, end: 20110113

REACTIONS (3)
  - MATERNAL EXPOSURE DURING PREGNANCY [None]
  - DEEP VEIN THROMBOSIS [None]
  - PULMONARY EMBOLISM [None]
